FAERS Safety Report 10871890 (Version 1)
Quarter: 2015Q1

REPORT INFORMATION
  Report Type: Spontaneous
  Country: US (occurrence: US)
  Receive Date: 20150226
  Receipt Date: 20150226
  Transmission Date: 20150721
  Serious: Yes (Life-Threatening, Hospitalization, Other)
  Sender: FDA-Public Use
  Company Number: US-BAYER-2015-024509

PATIENT
  Age: 25 Year
  Sex: Female

DRUGS (1)
  1. CAMPHOR + PHENOL [Suspect]
     Active Substance: CAMPHOR\PHENOL
     Indication: RASH
     Dosage: 117.53 MG/KG, UNK
     Route: 048

REACTIONS (14)
  - Abdominal pain [None]
  - Seizure [None]
  - Vomiting [None]
  - Diarrhoea [None]
  - Headache [None]
  - Vertigo [None]
  - Incorrect route of drug administration [None]
  - Toxicity to various agents [None]
  - Delirium [Recovered/Resolved]
  - Depressed level of consciousness [None]
  - Tachycardia [Recovered/Resolved]
  - Hypersomnia [None]
  - Migraine [None]
  - Accidental overdose [None]
